FAERS Safety Report 23070358 (Version 1)
Quarter: 2023Q4

REPORT INFORMATION
  Report Type: Spontaneous
  Country: GB (occurrence: GB)
  Receive Date: 20231016
  Receipt Date: 20231016
  Transmission Date: 20240110
  Serious: Yes (Disabling)
  Sender: FDA-Public Use
  Company Number: GB-MHRA-MED-202310061018341780-KWCYH

PATIENT
  Age: 67 Year
  Sex: Male
  Weight: 65 kg

DRUGS (1)
  1. PAXLOVID [Suspect]
     Active Substance: NIRMATRELVIR\RITONAVIR
     Indication: COVID-19 treatment
     Dosage: UNK
     Dates: start: 20231002, end: 20231005

REACTIONS (8)
  - Neuropathy peripheral [Not Recovered/Not Resolved]
  - Night sweats [Recovered/Resolved]
  - Nausea [Unknown]
  - Diarrhoea [Unknown]
  - Sensory loss [Unknown]
  - Nerve injury [Unknown]
  - Disease recurrence [Unknown]
  - Product dose omission issue [Unknown]

NARRATIVE: CASE EVENT DATE: 20231002
